FAERS Safety Report 24453463 (Version 2)
Quarter: 2024Q4

REPORT INFORMATION
  Report Type: Report from Study
  Country: US (occurrence: US)
  Receive Date: 20241017
  Receipt Date: 20241018
  Transmission Date: 20250115
  Serious: No
  Sender: ROCHE
  Company Number: US-ROCHE-3335742

PATIENT
  Age: 36 Year
  Sex: Female

DRUGS (2)
  1. RITUXAN [Suspect]
     Active Substance: RITUXIMAB
     Indication: Rheumatoid arthritis
     Dosage: FOR IMMUNOLOGY?ON DAY 0 AND DAY 14 THEN REPEAT COURSE EVERY 24 WEEKS?(INJECTION , RITUXIMAB 10 MG)
     Route: 042
     Dates: start: 20220909
  2. RITUXAN [Suspect]
     Active Substance: RITUXIMAB
     Indication: Interstitial lung disease

REACTIONS (1)
  - Malaise [Unknown]
